FAERS Safety Report 8622072-0 (Version None)
Quarter: 2012Q3

REPORT INFORMATION
  Report Type: 
  Country: None (occurrence: None)
  Receive Date: 20120823
  Receipt Date: 20120823
  Transmission Date: 20120928
  Serious: No
  Sender: FDA-Public Use
  Company Number: None

PATIENT
  Age: 27 Year
  Weight: 113 kg

DRUGS (1)
  1. HYDROMORPHONE HCL [Suspect]
     Indication: PROCEDURAL PAIN
     Dosage: 1MG Q10MIN X 3 IV BOLUS
     Route: 040
     Dates: start: 20120821, end: 20120821

REACTIONS (1)
  - PRURITUS [None]
